FAERS Safety Report 21688246 (Version 2)
Quarter: 2023Q1

REPORT INFORMATION
  Report Type: Spontaneous
  Country: US (occurrence: US)
  Receive Date: 20221206
  Receipt Date: 20230118
  Transmission Date: 20230418
  Serious: Yes (Other)
  Sender: FDA-Public Use
  Company Number: US-PFIZER INC-PV202200116166

PATIENT
  Age: 67 Year
  Sex: Female

DRUGS (1)
  1. NIVESTYM [Suspect]
     Active Substance: FILGRASTIM-AAFI
     Indication: Pancreatic carcinoma
     Dosage: UNK, CYCLIC
     Dates: start: 20221116

REACTIONS (1)
  - No adverse event [Unknown]
